FAERS Safety Report 11240241 (Version 2)
Quarter: 2015Q3

REPORT INFORMATION
  Report Type: Spontaneous
  Country: US (occurrence: US)
  Receive Date: 20150706
  Receipt Date: 20150714
  Transmission Date: 20151125
  Serious: Yes (Hospitalization, Other)
  Sender: FDA-Public Use
  Company Number: US-BAXTER-2015BAX037004

PATIENT
  Age: 14 Year
  Sex: Male

DRUGS (1)
  1. DIANEAL PD-2 WITH DEXTROSE [Suspect]
     Active Substance: CALCIUM CHLORIDE\DEXTROSE MONOHYDRATE\MAGNESIUM CHLORIDE\SODIUM CHLORIDE\SODIUM LACTATE
     Indication: PERITONEAL DIALYSIS
     Route: 033
     Dates: start: 2013

REACTIONS (2)
  - Rhinovirus infection [Recovering/Resolving]
  - Neoplasm malignant [Unknown]

NARRATIVE: CASE EVENT DATE: 20150626
